FAERS Safety Report 8245019 (Version 2)
Quarter: 2012Q4

REPORT INFORMATION
  Report Type: 
  Country: US (occurrence: US)
  Receive Date: 20111115
  Receipt Date: 20120921
  Transmission Date: 20130627
  Serious: Yes (Other)
  Sender: FDA-Public Use
  Company Number: US-US-EMD SERONO, INC.-7094482

PATIENT
  Age: 60 None
  Sex: Female
  Weight: 91 kg

DRUGS (4)
  1. REBIF [Suspect]
     Indication: MULTIPLE SCLEROSIS
     Route: 058
     Dates: start: 20110627, end: 20111007
  2. GABAPENTIN [Suspect]
     Indication: NEURALGIA
     Dates: end: 201110
  3. AMANTADINE [Concomitant]
  4. ZANAFLEX [Concomitant]
     Indication: MUSCLE SPASTICITY

REACTIONS (5)
  - Arrhythmia [Not Recovered/Not Resolved]
  - Urinary tract infection [Unknown]
  - Hyperhidrosis [Recovering/Resolving]
  - Vomiting [Unknown]
  - Chest pain [Recovering/Resolving]
